FAERS Safety Report 25040595 (Version 2)
Quarter: 2025Q1

REPORT INFORMATION
  Report Type: Spontaneous
  Country: US (occurrence: US)
  Receive Date: 20250305
  Receipt Date: 20250325
  Transmission Date: 20250409
  Serious: Yes (Other)
  Sender: NOVARTIS
  Company Number: US-002147023-NVSC2025US036039

PATIENT
  Age: 52 Year
  Sex: Female

DRUGS (1)
  1. KESIMPTA [Suspect]
     Active Substance: OFATUMUMAB
     Indication: Multiple sclerosis
     Dosage: 20 MG, QW (3 LOADING DOSES (1 DOSE PER WEEK FOR PAST 3 WEEKS) AND WILL TAKE MAINTENANCE THERAPY STAR
     Route: 058
     Dates: start: 20250211, end: 20250225

REACTIONS (5)
  - Multiple sclerosis relapse [Recovering/Resolving]
  - Gait disturbance [Unknown]
  - Muscle spasticity [Unknown]
  - Peroneal nerve palsy [Unknown]
  - Mobility decreased [Unknown]

NARRATIVE: CASE EVENT DATE: 20250213
